FAERS Safety Report 4690508-6 (Version None)
Quarter: 2005Q2

REPORT INFORMATION
  Report Type: 
  Country: None (occurrence: None)
  Receive Date: 20050613
  Receipt Date: 20050530
  Transmission Date: 20051028
  Serious: Yes (Hospitalization)
  Sender: FDA-Public Use
  Company Number: 2005069106

PATIENT
  Age: 71 Year
  Sex: Female

DRUGS (5)
  1. BEXTRA [Suspect]
     Indication: BACK PAIN
     Dosage: 40 MG (40 MG, 1 IN 1 D), ORAL
     Route: 048
     Dates: start: 20030101, end: 20030101
  2. TYLENOL [Concomitant]
  3. PURAN T4 (LEVOTHYROXINE SODIUM) [Concomitant]
  4. MODURETIC 5-50 [Concomitant]
  5. ATENSINA (CLONIDINE HYDROCHLORIDE) [Concomitant]

REACTIONS (7)
  - ABDOMINAL PAIN UPPER [None]
  - GASTRIC DISORDER [None]
  - MALAISE [None]
  - PYREXIA [None]
  - TREMOR [None]
  - ULCER [None]
  - VOMITING [None]
